FAERS Safety Report 12823811 (Version 3)
Quarter: 2016Q4

REPORT INFORMATION
  Report Type: Report from Study
  Country: UA (occurrence: UA)
  Receive Date: 20161006
  Receipt Date: 20161110
  Transmission Date: 20170207
  Serious: Yes (Other)
  Sender: FDA-Public Use
  Company Number: UA-B.I. PHARMACEUTICALS,INC./RIDGEFIELD-2016-BI-064011

PATIENT
  Age: 76 Year
  Sex: Male

DRUGS (12)
  1. TRIFAS [Concomitant]
     Indication: HYPERTENSION
     Route: 048
     Dates: start: 20150814
  2. CYTOFLAVIN [Concomitant]
     Indication: ISCHAEMIC STROKE
     Route: 042
     Dates: start: 20150814, end: 20150904
  3. WARFARIN [Concomitant]
     Active Substance: WARFARIN
     Indication: CARDIOVASCULAR EVENT PROPHYLAXIS
     Route: 048
     Dates: start: 20150814
  4. NEUROXON [Concomitant]
     Indication: ISCHAEMIC STROKE
     Route: 048
     Dates: start: 20150814, end: 20151004
  5. BISOPROLOL [Concomitant]
     Active Substance: BISOPROLOL
     Indication: ATRIAL FIBRILLATION
     Route: 048
     Dates: start: 20141113
  6. BLINDED LINAGLIPTIN [Suspect]
     Active Substance: LINAGLIPTIN
     Indication: TYPE 2 DIABETES MELLITUS
     Route: 048
     Dates: start: 20150310, end: 20150525
  7. FARMASULIN [Concomitant]
     Indication: TYPE 2 DIABETES MELLITUS
     Route: 058
     Dates: start: 20150531
  8. OMEZ [Concomitant]
     Active Substance: OMEPRAZOLE
     Indication: GASTRITIS PROPHYLAXIS
  9. HARTIL [Concomitant]
     Indication: HYPERTENSION
     Route: 048
     Dates: start: 20150814
  10. PLAVIX [Concomitant]
     Active Substance: CLOPIDOGREL BISULFATE
     Indication: CARDIOVASCULAR EVENT PROPHYLAXIS
     Route: 048
     Dates: start: 20150814
  11. ROZART [Concomitant]
     Indication: ARTERIOSCLEROSIS
     Route: 048
     Dates: start: 20150531
  12. L-LYSINE [Concomitant]
     Active Substance: LYSINE
     Indication: ISCHAEMIC STROKE
     Route: 042
     Dates: start: 20150814, end: 20150904

REACTIONS (2)
  - Pancreatitis chronic [Not Recovered/Not Resolved]
  - Pancreatitis chronic [Not Recovered/Not Resolved]

NARRATIVE: CASE EVENT DATE: 20150817
